FAERS Safety Report 5957084-9 (Version None)
Quarter: 2008Q4

REPORT INFORMATION
  Report Type: 
  Country: None (occurrence: None)
  Receive Date: 20081118
  Receipt Date: 20081106
  Transmission Date: 20090506
  Serious: Yes (Death)
  Sender: FDA-Public Use
  Company Number: KR-PFIZER INC-2008089359

PATIENT
  Sex: Male
  Weight: 71 kg

DRUGS (7)
  1. VFEND [Suspect]
     Indication: SCEDOSPORIUM INFECTION
     Dates: start: 20080302, end: 20080302
  2. ZYVOX [Concomitant]
     Dates: start: 20080223, end: 20080302
  3. FUNGIZONE [Concomitant]
     Dates: start: 20080225, end: 20080302
  4. TAZOCIN [Concomitant]
     Dates: start: 20080223, end: 20080302
  5. PIPERACILLIN [Concomitant]
     Dates: start: 20080302, end: 20080302
  6. AMIKIN [Concomitant]
     Dates: start: 20080223, end: 20080302
  7. CIPRO [Concomitant]
     Dates: start: 20080302, end: 20080302

REACTIONS (2)
  - PNEUMONIA [None]
  - SEPTIC SHOCK [None]
